FAERS Safety Report 6903321-3 (Version None)
Quarter: 2010Q3

REPORT INFORMATION
  Report Type: 
  Country: None (occurrence: None)
  Receive Date: 20100803
  Receipt Date: 20080917
  Transmission Date: 20110219
  Serious: No
  Sender: FDA-Public Use
  Company Number: US-PFIZER INC-2008079343

PATIENT
  Sex: Female
  Weight: 77.3 kg

DRUGS (7)
  1. LYRICA [Suspect]
     Indication: HYPOAESTHESIA
  2. LYRICA [Suspect]
     Indication: BURNING SENSATION
  3. LORAZEPAM [Concomitant]
  4. OXYCODONE [Concomitant]
  5. ZYVOX [Concomitant]
  6. KLONOPIN [Concomitant]
  7. DRUG, UNSPECIFIED [Concomitant]

REACTIONS (1)
  - VISION BLURRED [None]
